FAERS Safety Report 22032813 (Version 1)
Quarter: 2023Q1

REPORT INFORMATION
  Report Type: Spontaneous
  Country: US (occurrence: None)
  Receive Date: 20230222
  Receipt Date: 20230222
  Transmission Date: 20230417
  Serious: Yes (Death)
  Sender: FDA-Public Use
  Company Number: None

PATIENT
  Age: 78 Year
  Sex: Female
  Weight: 63.7 kg

DRUGS (1)
  1. BREXUCABTAGENE AUTOLEUCEL [Suspect]
     Active Substance: BREXUCABTAGENE AUTOLEUCEL
     Indication: Acute lymphocytic leukaemia
     Dosage: OTHER FREQUENCY : ONCE;?
     Route: 042
     Dates: start: 20230213, end: 20230213

REACTIONS (7)
  - Cytokine release syndrome [None]
  - Hypoxia [None]
  - Atrial fibrillation [None]
  - Hypotension [None]
  - Cardio-respiratory arrest [None]
  - International normalised ratio increased [None]
  - Blood fibrinogen decreased [None]

NARRATIVE: CASE EVENT DATE: 20230221
